FAERS Safety Report 7132373-3 (Version None)
Quarter: 2010Q4

REPORT INFORMATION
  Report Type: 
  Country: None (occurrence: None)
  Receive Date: 20101129
  Receipt Date: 20101129
  Transmission Date: 20110411
  Serious: Yes (Hospitalization)
  Sender: FDA-Public Use
  Company Number: None

PATIENT
  Sex: Female
  Weight: 97.4 kg

DRUGS (4)
  1. TEMSIROLIMUS [Suspect]
     Indication: METASTASIS
     Dosage: TEMSIROLIMUS WEEKLY IV
     Route: 042
     Dates: start: 20101104
  2. TEMSIROLIMUS [Suspect]
     Indication: NEOPLASM MALIGNANT
     Dosage: TEMSIROLIMUS WEEKLY IV
     Route: 042
     Dates: start: 20101104
  3. VINORELBINE [Suspect]
     Indication: METASTASIS
     Dosage: VINORELBINE BIWEEKLY IV
     Route: 042
     Dates: start: 20101104
  4. VINORELBINE [Suspect]
     Indication: NEOPLASM MALIGNANT
     Dosage: VINORELBINE BIWEEKLY IV
     Route: 042
     Dates: start: 20101104

REACTIONS (1)
  - BRONCHITIS [None]
